FAERS Safety Report 18068288 (Version 4)
Quarter: 2020Q3

REPORT INFORMATION
  Report Type: Spontaneous
  Country: ES (occurrence: ES)
  Receive Date: 20200724
  Receipt Date: 20200813
  Transmission Date: 20201103
  Serious: Yes (Death, Life-Threatening, Hospitalization, Other)
  Sender: FDA-Public Use
  Company Number: ES-BAUSCH-BL-2020-020772

PATIENT
  Age: 41 Year
  Sex: Male
  Weight: 84 kg

DRUGS (4)
  1. VENLAFAXINE [Suspect]
     Active Substance: VENLAFAXINE HYDROCHLORIDE
     Indication: ADJUSTMENT DISORDER WITH DEPRESSED MOOD
     Route: 065
     Dates: start: 201510
  2. TRAMADOL/PARACETAMOL [Interacting]
     Active Substance: ACETAMINOPHEN\TRAMADOL
     Dosage: DURING THE PAST 2 YEARS (FROM DATE OF INITIAL REPORT); TAKEN BETWEEN 6 AND 12 TABLETS/DAY
     Route: 065
     Dates: start: 2014, end: 2016
  3. DIAZEPAM. [Concomitant]
     Active Substance: DIAZEPAM
     Indication: ADJUSTMENT DISORDER WITH DEPRESSED MOOD
     Dosage: AT NIGHT; AS REQUIRED
     Route: 065
  4. TRAMADOL/PARACETAMOL [Interacting]
     Active Substance: ACETAMINOPHEN\TRAMADOL
     Indication: SPINAL OSTEOARTHRITIS
     Dosage: STRENGTH: TRAMADOL 37.5 MG/PARACETAMOL 325 MG, TOOK ONLY SPORADICALLY FOR THE FIRST 3 YEARS
     Route: 065
     Dates: start: 2011, end: 2014

REACTIONS (5)
  - Fall [Fatal]
  - Drug interaction [Fatal]
  - Craniocerebral injury [Fatal]
  - Serotonin syndrome [Unknown]
  - Accident at work [Fatal]

NARRATIVE: CASE EVENT DATE: 20160404
